FAERS Safety Report 8032822-2 (Version None)
Quarter: 2012Q1

REPORT INFORMATION
  Report Type: 
  Country: None (occurrence: None)
  Receive Date: 20120110
  Receipt Date: 20120106
  Transmission Date: 20120608
  Serious: Yes (Hospitalization)
  Sender: FDA-Public Use
  Company Number: NZ-B.I. PHARMACEUTICALS,INC./RIDGEFIELD-2010-AU-00501AU

PATIENT
  Sex: Male
  Weight: 75 kg

DRUGS (2)
  1. PRADAXA [Suspect]
     Indication: AORTIC VALVE REPLACEMENT
     Dosage: 220 MG
     Route: 048
     Dates: start: 20090901
  2. ASPIRIN [Suspect]
     Indication: AORTIC VALVE REPLACEMENT
     Dosage: 100 MG
     Dates: start: 20080601

REACTIONS (3)
  - CARDIAC VALVE REPLACEMENT COMPLICATION [None]
  - CEREBRAL ARTERY EMBOLISM [None]
  - HEMIPARESIS [None]
